FAERS Safety Report 8410118-4 (Version None)
Quarter: 2012Q2

REPORT INFORMATION
  Report Type: 
  Country: None (occurrence: None)
  Receive Date: 20120605
  Receipt Date: 20120527
  Transmission Date: 20120825
  Serious: Yes (Hospitalization)
  Sender: FDA-Public Use
  Company Number: PHHY2012CL034090

PATIENT
  Sex: Female

DRUGS (1)
  1. GLEEVEC [Suspect]
     Indication: GASTROINTESTINAL STROMAL TUMOUR
     Dosage: 400 MG, UNK
     Route: 048
     Dates: start: 20100101

REACTIONS (7)
  - VOMITING [None]
  - NEOPLASM PROGRESSION [None]
  - APHAGIA [None]
  - NEOPLASM MALIGNANT [None]
  - INTESTINAL OBSTRUCTION [None]
  - DEHYDRATION [None]
  - DYSPEPSIA [None]
